FAERS Safety Report 4960174-0 (Version None)
Quarter: 2006Q1

REPORT INFORMATION
  Report Type: 
  Country: None (occurrence: None)
  Receive Date: 20060328
  Receipt Date: 20060320
  Transmission Date: 20060701
  Serious: Yes (Other)
  Sender: FDA-Public Use
  Company Number: 2005068169

PATIENT
  Age: 47 Year
  Sex: Female

DRUGS (8)
  1. BEXTRA [Suspect]
     Indication: FIBROMYALGIA
     Dosage: 20 MG (20 MG, 1 IN 1 D), ORAL
     Route: 048
     Dates: start: 20020801, end: 20030201
  2. VIOXX [Suspect]
     Indication: ILL-DEFINED DISORDER
  3. ALEVE [Concomitant]
  4. TENORMIN [Concomitant]
  5. TRAMADOL HCL [Concomitant]
  6. NEXIUM [Concomitant]
  7. SKELAXINE (METAXALONE) [Concomitant]
  8. ZOLOFT [Concomitant]

REACTIONS (9)
  - ABDOMINAL DISCOMFORT [None]
  - CEREBRAL INFARCTION [None]
  - CEREBROVASCULAR ACCIDENT [None]
  - DIARRHOEA HAEMORRHAGIC [None]
  - DRUG INTOLERANCE [None]
  - DYSPEPSIA [None]
  - EMOTIONAL DISTRESS [None]
  - INJURY [None]
  - STRESS FRACTURE [None]
